FAERS Safety Report 10591823 (Version 1)
Quarter: 2014Q4

REPORT INFORMATION
  Report Type: Spontaneous
  Country: US (occurrence: US)
  Receive Date: 20141118
  Receipt Date: 20141118
  Transmission Date: 20150529
  Serious: Yes (Hospitalization)
  Sender: FDA-Public Use
  Company Number: PHHY2014US146737

PATIENT
  Age: 10 Year
  Sex: Female

DRUGS (1)
  1. CIPROFLOXACIN. [Suspect]
     Active Substance: CIPROFLOXACIN
     Indication: URINARY TRACT INFECTION
     Dosage: 10 MG/KG, UNK
     Route: 065

REACTIONS (6)
  - Bone disorder [Recovered/Resolved]
  - Arthralgia [Recovered/Resolved]
  - Osteochondrosis [Recovered/Resolved]
  - Bone lesion [Recovered/Resolved]
  - Joint injury [Recovered/Resolved]
  - Decreased activity [Recovered/Resolved]
